FAERS Safety Report 22253127 (Version 6)
Quarter: 2023Q2

REPORT INFORMATION
  Report Type: Report from Study
  Country: BE (occurrence: BE)
  Receive Date: 20230426
  Receipt Date: 20230525
  Transmission Date: 20230722
  Serious: Yes (Other)
  Sender: FDA-Public Use
  Company Number: BE-ABBVIE-4741377

PATIENT
  Sex: Female

DRUGS (17)
  1. CARBIDOPA\LEVODOPA [Suspect]
     Active Substance: CARBIDOPA\LEVODOPA
     Indication: Parkinson^s disease
     Dosage: MD: 3.5 ML, CD: 2.3 ML/H?DURATION - 16 HOURS
     Route: 050
     Dates: start: 20230424, end: 20230425
  2. CARBIDOPA\LEVODOPA [Suspect]
     Active Substance: CARBIDOPA\LEVODOPA
     Route: 050
     Dates: start: 20200527
  3. CARBIDOPA\LEVODOPA [Suspect]
     Active Substance: CARBIDOPA\LEVODOPA
     Dosage: CD: 2.2 ML/H DURING 16 HOURS
     Route: 050
     Dates: start: 20230425, end: 20230426
  4. CARBIDOPA\LEVODOPA [Suspect]
     Active Substance: CARBIDOPA\LEVODOPA
     Dosage: CD: 2.1 ML/H DURING 16 HOURS
     Route: 050
     Dates: start: 20230426, end: 20230504
  5. CARBIDOPA\LEVODOPA [Suspect]
     Active Substance: CARBIDOPA\LEVODOPA
     Dosage: MD: 6.5 ML, CD: 2.4 ML/H, ED: 1.5 ML, CND: 1.3 ML/H DURING 24 HOUR
     Route: 050
     Dates: start: 20230504
  6. LORMETAZEPAM AL [Concomitant]
     Indication: Product used for unknown indication
  7. ASPIRIN [Concomitant]
     Active Substance: ASPIRIN
     Indication: Product used for unknown indication
     Dosage: FORM STRENGTH: 80
  8. AMANTADINE [Concomitant]
     Active Substance: AMANTADINE
     Indication: Product used for unknown indication
     Dosage: FORM STRENGTH: 100
  9. BENSERAZIDE\LEVODOPA [Concomitant]
     Active Substance: BENSERAZIDE\LEVODOPA
     Indication: Product used for unknown indication
     Dosage: FORM STRENGTH: 250?FREQUENCY TEXT: 06.00, 12.00
  10. BENSERAZIDE\LEVODOPA [Concomitant]
     Active Substance: BENSERAZIDE\LEVODOPA
     Indication: Product used for unknown indication
     Dosage: SINCE DUODOPA: 0.5 TABLET?FORM STRENGTH: 125?FREQUENCY TEXT: AT 06.00 IN THE MORNING
     Route: 065
  11. BENSERAZIDE\LEVODOPA [Concomitant]
     Active Substance: BENSERAZIDE\LEVODOPA
     Indication: Product used for unknown indication
     Dosage: FORM STRENGTH: 250?FREQUENCY TEXT: 08.00, 10.00, 14.00, 16.00, 18.00, 20.00
  12. BENSERAZIDE\LEVODOPA [Concomitant]
     Active Substance: BENSERAZIDE\LEVODOPA
     Indication: Product used for unknown indication
     Dosage: BEFORE DUODOPA: 0.5 TABLET  MAX 2 TABLETS 6 HOUR INTERVAL?FORM STRENGTH: 125?FREQUENCY TEXT: IF N...
     Route: 065
  13. Pantomed [Concomitant]
     Indication: Product used for unknown indication
     Dosage: FORM STRENGTH: 40
  14. MICARDIS [Concomitant]
     Active Substance: TELMISARTAN
     Indication: Product used for unknown indication
  15. APOMORPHINE HYDROCHLORIDE [Concomitant]
     Active Substance: APOMORPHINE HYDROCHLORIDE
     Indication: Product used for unknown indication
     Dosage: 1 MG- MAX 10 MG/ 24 HOURS- 20 MINUTES INTERVAL?PEN
  16. EFFEXOR [Concomitant]
     Active Substance: VENLAFAXINE HYDROCHLORIDE
     Indication: Product used for unknown indication
     Dates: end: 202112
  17. EFFEXOR [Concomitant]
     Active Substance: VENLAFAXINE HYDROCHLORIDE
     Indication: Product used for unknown indication
     Dates: start: 202112

REACTIONS (5)
  - Rehabilitation therapy [Not Recovered/Not Resolved]
  - Dyskinesia [Recovering/Resolving]
  - Insomnia [Recovering/Resolving]
  - Mobility decreased [Recovering/Resolving]
  - Unevaluable event [Recovering/Resolving]

NARRATIVE: CASE EVENT DATE: 20230101
